FAERS Safety Report 5449238-5 (Version None)
Quarter: 2007Q3

REPORT INFORMATION
  Report Type: 
  Country: None (occurrence: None)
  Receive Date: 20070911
  Receipt Date: 20070831
  Transmission Date: 20080115
  Serious: Yes (Hospitalization)
  Sender: FDA-Public Use
  Company Number: US-PFIZER INC-2007049512

PATIENT
  Sex: Female
  Weight: 62.8 kg

DRUGS (13)
  1. SILDENAFIL (PAH) [Suspect]
     Indication: VASODILATION PROCEDURE
     Route: 048
  2. EPOPROSTENOL SODIUM [Suspect]
     Indication: PULMONARY HYPERTENSION
     Dosage: TEXT:30 NG/KG/MIN INTERVAL: CONTINUOUS-FREQ:TDD: 2548800 NG
     Route: 042
     Dates: start: 20031008
  3. LOPERAMIDE HCL [Concomitant]
     Dosage: TEXT:1-2MG DOSE-FREQ:PRN
     Route: 048
  4. AMILORIDE HYDROCHLORIDE [Concomitant]
     Route: 048
  5. NEURONTIN [Concomitant]
     Route: 048
  6. FOSAMAX [Concomitant]
     Route: 048
  7. CITRACAL [Concomitant]
     Route: 048
  8. MAGNESIUM OXIDE [Concomitant]
     Route: 048
  9. WARFARIN SODIUM [Concomitant]
     Route: 048
  10. ACETAMINOPHEN [Concomitant]
     Route: 048
  11. ZAROXOLYN [Concomitant]
     Route: 048
  12. OXYGEN [Concomitant]
     Route: 055
  13. LORCET-HD [Concomitant]
     Route: 048
     Dates: start: 20030805

REACTIONS (14)
  - ABDOMINAL PAIN [None]
  - ADRENAL ADENOMA [None]
  - ANGIOPATHY [None]
  - CARDIOMEGALY [None]
  - COLITIS ISCHAEMIC [None]
  - CONTRAST MEDIA REACTION [None]
  - DIALYSIS [None]
  - HEPATIC CONGESTION [None]
  - LIVER DISORDER [None]
  - PLEURAL EFFUSION [None]
  - RENAL FAILURE ACUTE [None]
  - RESTLESS LEGS SYNDROME [None]
  - SCAR [None]
  - UTERINE LEIOMYOMA [None]
